FAERS Safety Report 4508034-3 (Version None)
Quarter: 2004Q4

REPORT INFORMATION
  Report Type: 
  Country: None (occurrence: None)
  Receive Date: 20041123
  Receipt Date: 20030922
  Transmission Date: 20050328
  Serious: No
  Sender: FDA-Public Use
  Company Number: US-GLAXOSMITHKLINE-A0426935A

PATIENT
  Age: 53 Year
  Sex: Female

DRUGS (12)
  1. WELLBUTRIN [Suspect]
     Indication: ILL-DEFINED DISORDER
     Dosage: 150MG TWICE PER DAY
     Route: 048
  2. ZOLOFT [Concomitant]
  3. DOXEPIN HCL [Concomitant]
  4. CLORAZEPATE DIPOTASSIUM [Concomitant]
  5. GEODON [Concomitant]
  6. PREMARIN [Concomitant]
  7. VIT E [Concomitant]
  8. VIT C [Concomitant]
  9. CALCIUM [Concomitant]
  10. VIT D [Concomitant]
  11. MULTI-VITAMIN [Concomitant]
  12. EVENING PRIMROSE OIL [Concomitant]

REACTIONS (4)
  - ADVERSE EVENT [None]
  - CHEST PAIN [None]
  - HEADACHE [None]
  - PALPITATIONS [None]
